FAERS Safety Report 9104259 (Version 1)
Quarter: 2013Q1

REPORT INFORMATION
  Report Type: Spontaneous
  Country: US (occurrence: US)
  Receive Date: 20130220
  Receipt Date: 20130220
  Transmission Date: 20140127
  Serious: No
  Sender: FDA-Public Use
  Company Number: US-BAYER-2013-019288

PATIENT
  Age: 72 Year
  Sex: Female
  Weight: 83.9 kg

DRUGS (3)
  1. ALEVE CAPLET/TABLET,MIDOL EXTENDED RELIEF CAPLET [Suspect]
     Indication: ARTHRALGIA
     Dosage: 1 DF, QD
     Route: 048
     Dates: start: 2011
  2. CENTRUM [MINERALS NOS,VITAMINS NOS] [Concomitant]
  3. ZZZQUIL [Concomitant]

REACTIONS (2)
  - Incorrect drug administration duration [None]
  - Drug ineffective [None]
